FAERS Safety Report 11523320 (Version 1)
Quarter: 2015Q3

REPORT INFORMATION
  Report Type: Spontaneous
  Country: US (occurrence: US)
  Receive Date: 20150918
  Receipt Date: 20150918
  Transmission Date: 20151125
  Serious: No
  Sender: FDA-Public Use
  Company Number: US-ROCHE-749384

PATIENT
  Age: 37 Year
  Sex: Male

DRUGS (2)
  1. PEGASYS [Suspect]
     Active Substance: PEGINTERFERON ALFA-2A
     Indication: HEPATITIS C
     Dosage: FORM: PRE-FILLED SYRINGE
     Route: 065
  2. RIBAVIRIN. [Suspect]
     Active Substance: RIBAVIRIN
     Indication: HEPATITIS C
     Dosage: FREQUENCY: ONE 600 MG TABLET IN THE MORNING AND ONE 600 MG TABLET IN THE EVENING
     Route: 065

REACTIONS (3)
  - Vomiting [Unknown]
  - Body temperature increased [Unknown]
  - Nausea [Unknown]

NARRATIVE: CASE EVENT DATE: 20101219
